FAERS Safety Report 9168021 (Version 4)
Quarter: 2013Q2

REPORT INFORMATION
  Report Type: Spontaneous
  Country: DE (occurrence: None)
  Receive Date: 20130307
  Receipt Date: 20130522
  Transmission Date: 20140414
  Serious: Yes (Hospitalization)
  Sender: FDA-Public Use
  Company Number: ACO_34557_2013

PATIENT
  Age: 52 Year
  Sex: Male
  Weight: 84 kg

DRUGS (2)
  1. FAMPRIDINE [Suspect]
     Indication: MULTIPLE SCLEROSIS
     Route: 048
     Dates: start: 20120521
  2. GILENYA (FINGOLIMOD HYDROCHLORIDE) [Concomitant]

REACTIONS (5)
  - Uhthoff^s phenomenon [None]
  - Urinary tract infection [None]
  - Urinary retention [None]
  - Abasia [None]
  - Alanine aminotransferase increased [None]
